FAERS Safety Report 6082882-3 (Version None)
Quarter: 2009Q1

REPORT INFORMATION
  Report Type: 
  Country: None (occurrence: None)
  Receive Date: 20090218
  Receipt Date: 20090209
  Transmission Date: 20090719
  Serious: Yes (Hospitalization, Other)
  Sender: FDA-Public Use
  Company Number: PHHY2009DE01817

PATIENT
  Sex: Male
  Weight: 115 kg

DRUGS (6)
  1. HYDROCHLOROTHIAZIDE [Suspect]
  2. AMLODIPIN ^ORIFARM^ [Suspect]
  3. BELOC ZOK [Suspect]
  4. RAMIPRIL [Suspect]
  5. ENALAPRIL [Concomitant]
  6. ACTRAPHANE HM [Concomitant]

REACTIONS (2)
  - ANAEMIA HAEMOLYTIC AUTOIMMUNE [None]
  - MALAISE [None]
